FAERS Safety Report 4276369-8 (Version None)
Quarter: 2004Q1

REPORT INFORMATION
  Report Type: 
  Country: None (occurrence: None)
  Receive Date: 20040120
  Receipt Date: 20040120
  Transmission Date: 20041129
  Serious: Yes (Hospitalization)
  Sender: FDA-Public Use
  Company Number: None

PATIENT
  Age: 58 Year
  Sex: Male
  Weight: 62.2 kg

DRUGS (5)
  1. PHENYTOIN [Suspect]
     Indication: CONVULSION
     Dosage: 300 MG, BID, PO
     Route: 048
     Dates: start: 20030916, end: 20031102
  2. PHENYTOIN [Suspect]
     Indication: CONVULSION
     Dosage: 50 MG, QHS, PO
     Route: 048
     Dates: start: 20030828, end: 20031103
  3. DEMECLOCYCLINE [Concomitant]
  4. PHENOBARBITAL TAB [Concomitant]
  5. LEVETIRACETAM [Concomitant]

REACTIONS (3)
  - ATAXIA [None]
  - CONFUSIONAL STATE [None]
  - NYSTAGMUS [None]
